FAERS Safety Report 7785316-3 (Version None)
Quarter: 2011Q3

REPORT INFORMATION
  Report Type: 
  Country: None (occurrence: None)
  Receive Date: 20110929
  Receipt Date: 20110926
  Transmission Date: 20111222
  Serious: No
  Sender: FDA-Public Use
  Company Number: US-PFIZER INC-2011229305

PATIENT
  Sex: Female
  Weight: 88.889 kg

DRUGS (5)
  1. PROTONIX [Concomitant]
     Dosage: 40 MG, 1X/DAY
  2. PRISTIQ [Suspect]
     Indication: DEPRESSION
     Dosage: 50 MG, 1X/DAY
     Route: 048
     Dates: start: 20100101
  3. TAGAMET [Concomitant]
     Dosage: 400 MG, 1X/DAY
  4. PROZAC [Suspect]
     Indication: DEPRESSION
     Dosage: 60 MG, 1X/DAY
     Route: 048
  5. IRON [Concomitant]
     Dosage: 325 MG, 1X/DAY

REACTIONS (4)
  - HOT FLUSH [None]
  - DRUG INEFFECTIVE [None]
  - HYPERHIDROSIS [None]
  - HIGH DENSITY LIPOPROTEIN DECREASED [None]
